FAERS Safety Report 9145736 (Version 1)
Quarter: 2013Q1

REPORT INFORMATION
  Report Type: Spontaneous
  Country: IN (occurrence: IN)
  Receive Date: 20130307
  Receipt Date: 20130307
  Transmission Date: 20140127
  Serious: Yes (Other)
  Sender: FDA-Public Use
  Company Number: PHHY2013IN020519

PATIENT
  Sex: 0

DRUGS (1)
  1. ASUNRA [Suspect]
     Indication: THALASSAEMIA BETA
     Dosage: 40 MG/KG, DAILY
     Route: 048

REACTIONS (2)
  - Uraemic encephalopathy [Recovered/Resolved]
  - Loss of consciousness [Unknown]
